FAERS Safety Report 6569587-7 (Version None)
Quarter: 2010Q1

REPORT INFORMATION
  Report Type: 
  Country: None (occurrence: None)
  Receive Date: 20100204
  Receipt Date: 20090722
  Transmission Date: 20100710
  Serious: Yes (Other)
  Sender: FDA-Public Use
  Company Number: RU-NOVOPROD-289843

PATIENT
  Sex: Female

DRUGS (19)
  1. PROTAPHANE HM [Suspect]
     Indication: TYPE 2 DIABETES MELLITUS
     Dosage: 50 IU, QD
     Route: 058
     Dates: start: 20050315
  2. HUMALOG [Suspect]
     Indication: TYPE 2 DIABETES MELLITUS
     Dosage: 34 IU, QD
     Route: 058
     Dates: start: 20090415
  3. INVESTIGATIONAL DRUG [Suspect]
     Indication: TYPE 2 DIABETES MELLITUS
     Dosage: 5/10 MG, QD
     Dates: start: 20081029
  4. ACTRAPID HM [Suspect]
     Indication: TYPE 2 DIABETES MELLITUS
     Dosage: 36 UNK, UNK
     Route: 058
  5. NOVORAPID [Concomitant]
     Dosage: UNK,ONCE A DAY
     Route: 048
     Dates: start: 20081029
  6. ARIFON [Concomitant]
     Dates: start: 20090121
  7. ACCUPRO [Concomitant]
     Dates: start: 20090218
  8. NORMODIPINE [Concomitant]
  9. ASPIRIN [Concomitant]
     Dates: start: 20081015
  10. CAVINTON [Concomitant]
     Dates: start: 20081001, end: 20081027
  11. NOOTROPYL [Concomitant]
     Dates: start: 20081001, end: 20081027
  12. BETASERC                           /00141801/ [Concomitant]
     Dates: start: 20081028, end: 20081110
  13. PALIN [Concomitant]
     Dates: start: 20081028, end: 20090131
  14. HYDROCHLOROTHIAZIDE [Concomitant]
     Dates: start: 20090218
  15. ALBUTEROL [Concomitant]
     Dates: start: 20090316, end: 20090323
  16. ATORVASTATIN [Concomitant]
     Dates: start: 20090602
  17. PHYSIOTENS [Concomitant]
  18. ASPIRIN [Concomitant]
     Dates: start: 20081015
  19. HYPOTHIAZIDE [Concomitant]
     Dosage: UNK, UNK
     Dates: start: 20090121

REACTIONS (2)
  - DIZZINESS [None]
  - SYNCOPE [None]
